FAERS Safety Report 23576810 (Version 1)
Quarter: 2024Q1

REPORT INFORMATION
  Report Type: Spontaneous
  Country: TW (occurrence: TW)
  Receive Date: 20240228
  Receipt Date: 20240228
  Transmission Date: 20240410
  Serious: Yes (Death)
  Sender: FDA-Public Use
  Company Number: TW-DAIICHI SANKYO, INC.-DSJ-2024-108877

PATIENT
  Age: 63 Year
  Sex: Female

DRUGS (1)
  1. TRASTUZUMAB DERUXTECAN [Suspect]
     Active Substance: TRASTUZUMAB DERUXTECAN
     Indication: Breast cancer
     Dosage: 100 MG (2 VIAL), ONCE EVERY 3 WK
     Route: 042
     Dates: start: 20231129

REACTIONS (1)
  - Death [Fatal]

NARRATIVE: CASE EVENT DATE: 20240210
